FAERS Safety Report 20854866 (Version 1)
Quarter: 2022Q2

REPORT INFORMATION
  Report Type: Spontaneous
  Country: US (occurrence: None)
  Receive Date: 20220520
  Receipt Date: 20220520
  Transmission Date: 20220720
  Serious: Yes (Hospitalization)
  Sender: FDA-Public Use
  Company Number: None

PATIENT
  Age: 72 Year
  Sex: Male
  Weight: 68.9 kg

DRUGS (2)
  1. FLUOROURACIL [Suspect]
     Active Substance: FLUOROURACIL
     Dates: end: 20220417
  2. CISPLATIN [Suspect]
     Active Substance: CISPLATIN
     Dates: end: 20220413

REACTIONS (8)
  - Pneumonia [None]
  - Asthenia [None]
  - Skin discolouration [None]
  - Sepsis [None]
  - Anaemia [None]
  - Pain in extremity [None]
  - Blood glucose increased [None]
  - Positive airway pressure therapy [None]

NARRATIVE: CASE EVENT DATE: 20220506
